FAERS Safety Report 24029256 (Version 1)
Quarter: 2024Q2

REPORT INFORMATION
  Report Type: Spontaneous
  Country: US (occurrence: None)
  Receive Date: 20240627
  Receipt Date: 20240627
  Transmission Date: 20240716
  Serious: Yes (Hospitalization, Other)
  Sender: FDA-Public Use
  Company Number: None

PATIENT
  Age: 68 Year
  Sex: Female
  Weight: 86.4 kg

DRUGS (18)
  1. REPATHA [Suspect]
     Active Substance: EVOLOCUMAB
     Indication: Hyperlipidaemia
     Dosage: OTHER FREQUENCY : EVERY 2 WEEKS;?
     Route: 058
     Dates: start: 20220825
  2. AMLODIPINE [Concomitant]
     Active Substance: AMLODIPINE BESYLATE
     Dates: start: 20240104
  3. Aspirin 81mg EC [Concomitant]
     Dates: start: 20240323
  4. FARXIGA [Concomitant]
     Dates: start: 20220713
  5. FEXOFENADINE [Concomitant]
     Active Substance: FEXOFENADINE HYDROCHLORIDE
     Dates: start: 20220613
  6. FLUTICASONE [Concomitant]
     Active Substance: FLUTICASONE
     Dates: start: 20230502
  7. FOLIC ACID [Concomitant]
     Active Substance: FOLIC ACID
     Dates: start: 20211116
  8. LISINOPRIL [Concomitant]
     Dates: start: 20230721
  9. METFORMIN [Concomitant]
     Dates: start: 20220810
  10. METHOTREXATE [Concomitant]
     Dates: start: 20221130
  11. Metoprolol ER [Concomitant]
     Dates: start: 20231220
  12. OMEPRAZOLE [Concomitant]
     Active Substance: OMEPRAZOLE
     Dates: start: 20230501
  13. KCL [Concomitant]
     Dates: start: 20221212
  14. PROPRANOLOL [Concomitant]
     Active Substance: PROPRANOLOL HYDROCHLORIDE
     Dates: start: 20230304
  15. ROPINIROLE [Concomitant]
     Dates: start: 20231220
  16. ROSUVASTATIN [Concomitant]
     Active Substance: ROSUVASTATIN
     Dates: start: 20230120
  17. TRAZODONE [Concomitant]
     Dates: start: 20220819
  18. VENLAFAXINE HYDROCHLORIDE [Concomitant]
     Active Substance: VENLAFAXINE HYDROCHLORIDE
     Dates: start: 20240404

REACTIONS (1)
  - Aortic dissection [None]

NARRATIVE: CASE EVENT DATE: 20240510
